FAERS Safety Report 19912338 (Version 2)
Quarter: 2021Q4

REPORT INFORMATION
  Report Type: Spontaneous
  Country: US (occurrence: US)
  Receive Date: 20211004
  Receipt Date: 20211109
  Transmission Date: 20220303
  Serious: Yes (Other)
  Sender: FDA-Public Use
  Company Number: US-ORG100016242-2021000535

PATIENT

DRUGS (12)
  1. EXPAREL [Suspect]
     Active Substance: BUPIVACAINE
     Dosage: 20 ML OF LB PLUS 40 ML 0.125% SB
     Route: 065
  2. BUPIVACAINE HYDROCHLORIDE [Suspect]
     Active Substance: BUPIVACAINE HYDROCHLORIDE
     Dosage: 40 ML 0.125% SB PLUS 20 ML OF LB
     Route: 065
  3. ACETAMINOPHEN [Concomitant]
     Active Substance: ACETAMINOPHEN
     Dosage: PREOPERATIVE
     Route: 065
  4. ACETAMINOPHEN [Concomitant]
     Active Substance: ACETAMINOPHEN
     Dosage: POSTPERATIVE
     Route: 065
  5. GABAPENTIN [Concomitant]
     Active Substance: GABAPENTIN
     Dosage: PREOPERATIVE; REDUCED TO 300 MG FOR PATIENTS }70 YEARS
     Route: 065
  6. GABAPENTIN [Concomitant]
     Active Substance: GABAPENTIN
     Dosage: POSTOPERATIVE
     Route: 048
  7. LIDOCAINE [Concomitant]
     Active Substance: LIDOCAINE
     Dosage: NOT PROVIDED
  8. KETAMINE [Concomitant]
     Active Substance: KETAMINE
     Dosage: NOT PROVIDED
  9. DEXAMETHASONE [Concomitant]
     Active Substance: DEXAMETHASONE
     Dosage: AT LEAST 4 MG
     Route: 042
  10. HYDROMORPHONE [Concomitant]
     Active Substance: HYDROMORPHONE
     Dosage: AS NEEDED
     Route: 042
  11. OXYCODONE [Concomitant]
     Active Substance: OXYCODONE
     Dosage: AS NEEDED; ONCE THE PATIENT WAS TOLERATING A REGULAR DIET
     Route: 048
  12. ONDANSETRON [Concomitant]
     Active Substance: ONDANSETRON
     Dosage: NOT PROVIDED
     Route: 065

REACTIONS (1)
  - Ileus [Unknown]
